FAERS Safety Report 22197533 (Version 1)
Quarter: 2023Q2

REPORT INFORMATION
  Report Type: Report from Study
  Country: US (occurrence: US)
  Receive Date: 20230411
  Receipt Date: 20230411
  Transmission Date: 20230722
  Serious: Yes (Other)
  Sender: FDA-Public Use
  Company Number: US-BAYER-2023A035752

PATIENT
  Age: 53 Year
  Sex: Male

DRUGS (2)
  1. STIVARGA [Suspect]
     Active Substance: REGORAFENIB
     Indication: Colon cancer
     Dosage: 80 MG, QD ON DAYS 1-7
     Route: 048
     Dates: start: 20230311, end: 20230317
  2. STIVARGA [Suspect]
     Active Substance: REGORAFENIB
     Indication: Colon cancer
     Dosage: 120 MG, QD ON DAYS 8-14
     Route: 048
     Dates: start: 20230318, end: 20230322

REACTIONS (6)
  - Loss of personal independence in daily activities [Recovering/Resolving]
  - Mobility decreased [Recovering/Resolving]
  - Dyspnoea [Recovering/Resolving]
  - Decreased appetite [Recovering/Resolving]
  - Fatigue [Recovering/Resolving]
  - Off label use [None]

NARRATIVE: CASE EVENT DATE: 20230301
